FAERS Safety Report 25100611 (Version 1)
Quarter: 2025Q1

REPORT INFORMATION
  Report Type: Report from Study
  Country: GB (occurrence: GB)
  Receive Date: 20250320
  Receipt Date: 20250320
  Transmission Date: 20250409
  Serious: Yes (Other)
  Sender: ROCHE
  Company Number: GB-ROCHE-2030005

PATIENT
  Age: 67 Year
  Sex: Female

DRUGS (7)
  1. TOCILIZUMAB [Suspect]
     Active Substance: TOCILIZUMAB
     Indication: Rheumatoid arthritis
     Route: 058
     Dates: start: 20170105
  2. TOCILIZUMAB [Suspect]
     Active Substance: TOCILIZUMAB
     Route: 058
  3. TOCILIZUMAB [Suspect]
     Active Substance: TOCILIZUMAB
     Route: 058
  4. TOCILIZUMAB [Suspect]
     Active Substance: TOCILIZUMAB
     Route: 058
  5. PREDNISOLONE [Concomitant]
     Active Substance: PREDNISOLONE
  6. HYDROXYCHLOROQUINE [Concomitant]
     Active Substance: HYDROXYCHLOROQUINE
  7. COCODAMOL [Concomitant]
     Active Substance: ACETAMINOPHEN\CODEINE PHOSPHATE

REACTIONS (13)
  - Malaise [Unknown]
  - Vasculitis [Unknown]
  - Rheumatoid arthritis [Unknown]
  - Pain [Unknown]
  - Bone pain [Unknown]
  - Nasopharyngitis [Recovered/Resolved]
  - Tooth fracture [Unknown]
  - Infection [Unknown]
  - Cellulitis [Unknown]
  - Ischaemic skin ulcer [Unknown]
  - Drug ineffective [Unknown]
  - Rheumatoid arthritis [Unknown]
  - Cellulitis [Unknown]

NARRATIVE: CASE EVENT DATE: 20180114
